FAERS Safety Report 17982825 (Version 9)
Quarter: 2021Q1

REPORT INFORMATION
  Report Type: Other
  Country: ES (occurrence: ES)
  Receive Date: 20200706
  Receipt Date: 20210101
  Transmission Date: 20210419
  Serious: Yes (Other)
  Sender: FDA-Public Use
  Company Number: ES-ROCHE-2509697

PATIENT
  Age: 65 Year
  Sex: Female

DRUGS (6)
  1. BOCEPREVIR [Suspect]
     Active Substance: BOCEPREVIR
     Indication: HEPATITIS C
     Dosage: 2400 MILLIGRAM, QD
     Route: 065
     Dates: start: 20120302, end: 20120307
  2. BOCEPREVIR [Suspect]
     Active Substance: BOCEPREVIR
     Dosage: 2400 MILLIGRAM, QD
     Route: 065
     Dates: start: 20120302, end: 20120307
  3. FUROSEMIDE. [Concomitant]
     Active Substance: FUROSEMIDE
     Indication: DIURETIC THERAPY
     Dosage: 40 MILLIGRAM, QD
     Route: 048
     Dates: start: 20120307, end: 20120411
  4. PEGINTERFERON ALFA?2A. [Suspect]
     Active Substance: PEGINTERFERON ALFA-2A
     Indication: HEPATITIS C
     Dosage: 1 PRE?FILLED SYRINGE OF 0.5 ML
     Route: 065
     Dates: start: 20120201, end: 20120307
  5. RIBAVIRIN. [Suspect]
     Active Substance: RIBAVIRIN
     Indication: HEPATITIS C
     Dosage: 1200 MG, QD
     Route: 065
     Dates: start: 20120201, end: 20120307
  6. VICTRELIS [Suspect]
     Active Substance: BOCEPREVIR
     Indication: HEPATITIS C
     Route: 065
     Dates: start: 20120302, end: 20120307

REACTIONS (4)
  - Fluid retention [Recovered/Resolved]
  - Hyponatraemia [Unknown]
  - Anaemia [Recovered/Resolved]
  - Oedema [Unknown]

NARRATIVE: CASE EVENT DATE: 201203
